FAERS Safety Report 5255631-6 (Version None)
Quarter: 2007Q1

REPORT INFORMATION
  Report Type: 
  Country: None (occurrence: None)
  Receive Date: 20070305
  Receipt Date: 20070221
  Transmission Date: 20070707
  Serious: Yes (Hospitalization)
  Sender: FDA-Public Use
  Company Number: JP-PFIZER INC-2006092930

PATIENT
  Age: 82 Year
  Sex: Male

DRUGS (1)
  1. CABASER [Suspect]
     Indication: PARKINSON'S DISEASE
     Route: 048

REACTIONS (1)
  - AORTIC VALVE DISEASE [None]
